FAERS Safety Report 4341003-5 (Version None)
Quarter: 2004Q2

REPORT INFORMATION
  Report Type: 
  Country: None (occurrence: None)
  Receive Date: 20040413
  Receipt Date: 20040330
  Transmission Date: 20050107
  Serious: Yes (Hospitalization)
  Sender: FDA-Public Use
  Company Number: RENA-10964

PATIENT
  Age: 59 Year
  Sex: Male
  Weight: 54 kg

DRUGS (6)
  1. RENAGEL [Suspect]
     Indication: HYPERPHOSPHATAEMIA
     Dosage: 1.5 G TID PO
     Route: 048
     Dates: start: 20030723, end: 20040225
  2. CALCIUM CARBONATE [Concomitant]
  3. AMLODIPINE BESYLATE [Concomitant]
  4. ALFACALCIDOL [Concomitant]
  5. ALOSENN [Concomitant]
  6. PURSENNID [Concomitant]

REACTIONS (4)
  - ANOREXIA [None]
  - HAEMODIALYSIS [None]
  - HEPATIC FUNCTION ABNORMAL [None]
  - MALAISE [None]
